FAERS Safety Report 7271727-1 (Version None)
Quarter: 2011Q1

REPORT INFORMATION
  Report Type: 
  Country: None (occurrence: None)
  Receive Date: 20110203
  Receipt Date: 20110125
  Transmission Date: 20110831
  Serious: Yes (Death)
  Sender: FDA-Public Use
  Company Number: US-NAPPMUNDI-USA-2011-0061816

PATIENT
  Age: 69 Year
  Sex: Male
  Weight: 63.492 kg

DRUGS (3)
  1. OXYCONTIN [Suspect]
     Indication: CANCER PAIN
     Dosage: 20 MG, SEE TEXT
     Dates: start: 20101223, end: 20101225
  2. XOPENEX [Concomitant]
     Indication: PRODUCT USED FOR UNKNOWN INDICATION
     Dosage: 45 MCG, Q4- 6H
  3. PERCOCET [Concomitant]
     Indication: PAIN
     Dosage: 5 MG, Q4H PRN

REACTIONS (2)
  - MYOCARDIAL INFARCTION [None]
  - HYPERSOMNIA [None]
